FAERS Safety Report 8492078-3 (Version None)
Quarter: 2012Q3

REPORT INFORMATION
  Report Type: 
  Country: None (occurrence: None)
  Receive Date: 20120706
  Receipt Date: 20120626
  Transmission Date: 20120928
  Serious: Yes (Hospitalization)
  Sender: FDA-Public Use
  Company Number: FR-CELGENEUS-056-21880-12062189

PATIENT
  Sex: Male

DRUGS (9)
  1. BORTEZOMIB [Suspect]
     Route: 065
     Dates: start: 20120625
  2. TEMAZEPAM [Concomitant]
     Route: 065
  3. REVLIMID [Suspect]
     Indication: MULTIPLE MYELOMA
     Route: 048
     Dates: start: 20120604, end: 20120611
  4. REVLIMID [Suspect]
     Route: 048
     Dates: start: 20120625
  5. DEXAMETHASONE [Suspect]
     Indication: MULTIPLE MYELOMA
     Route: 065
     Dates: start: 20120604, end: 20120611
  6. BORTEZOMIB [Suspect]
     Indication: MULTIPLE MYELOMA
     Route: 065
     Dates: start: 20120604, end: 20120614
  7. ANALGESICS [Concomitant]
     Route: 065
  8. DEXAMETHASONE [Suspect]
     Route: 065
     Dates: start: 20120625
  9. CORTICOSTEROIDS [Concomitant]
     Route: 065

REACTIONS (3)
  - HYPOXIA [None]
  - LUNG DISORDER [None]
  - HYPERTHERMIA [None]
